FAERS Safety Report 15573871 (Version 1)
Quarter: 2018Q4

REPORT INFORMATION
  Report Type: Spontaneous
  Country: US (occurrence: US)
  Receive Date: 20181101
  Receipt Date: 20181101
  Transmission Date: 20190205
  Serious: No
  Sender: FDA-Public Use
  Company Number: US-LUPIN PHARMACEUTICALS INC.-2017-06229

PATIENT
  Sex: Female
  Weight: 65.77 kg

DRUGS (4)
  1. LISINOPRIL TABLETS USP, 5MG [Suspect]
     Active Substance: LISINOPRIL
     Indication: PRODUCT USED FOR UNKNOWN INDICATION
     Dosage: UNK
     Route: 065
  2. PRAVASTATIN. [Concomitant]
     Active Substance: PRAVASTATIN
     Indication: BLOOD CHOLESTEROL ABNORMAL
     Dosage: 40 MG, QD
     Route: 065
     Dates: start: 201704
  3. DILANTIN [Concomitant]
     Active Substance: PHENYTOIN
     Dosage: 100 MG, TID
     Route: 065
  4. DILANTIN [Concomitant]
     Active Substance: PHENYTOIN
     Indication: GENERALISED TONIC-CLONIC SEIZURE
     Dosage: 4 DF, QOD
     Route: 065

REACTIONS (1)
  - Intentional product use issue [Unknown]
